FAERS Safety Report 21130248 (Version 3)
Quarter: 2023Q1

REPORT INFORMATION
  Report Type: Spontaneous
  Country: JP (occurrence: JP)
  Receive Date: 20220726
  Receipt Date: 20230325
  Transmission Date: 20230417
  Serious: Yes (Death, Hospitalization, Other)
  Sender: FDA-Public Use
  Company Number: JP-AMGEN-JPNSP2021139175

PATIENT

DRUGS (1)
  1. OTEZLA [Suspect]
     Active Substance: APREMILAST
     Indication: Psoriasis
     Dosage: 30 MILLIGRAM, BID
     Route: 065

REACTIONS (37)
  - Death [Fatal]
  - Cellulitis [Unknown]
  - COVID-19 pneumonia [Unknown]
  - Adverse drug reaction [Unknown]
  - Acute myocardial infarction [Unknown]
  - Arteriosclerosis coronary artery [Unknown]
  - Embolism venous [Unknown]
  - Ischaemic stroke [Unknown]
  - Neoplasm malignant [Unknown]
  - Localised infection [Unknown]
  - Cardiovascular disorder [Unknown]
  - Suicidal ideation [Unknown]
  - Arthropod bite [Unknown]
  - Anxiety [Unknown]
  - Coronary artery disease [Unknown]
  - Gastrointestinal pain [Unknown]
  - Hypertension [Unknown]
  - Lip swelling [Unknown]
  - Myalgia [Unknown]
  - Negative thoughts [Unknown]
  - Arthralgia [Unknown]
  - Folliculitis [Unknown]
  - Psoriasis [Unknown]
  - Nasopharyngitis [Unknown]
  - Cough [Unknown]
  - Decreased appetite [Unknown]
  - Dyspepsia [Unknown]
  - Nausea [Unknown]
  - Rash [Unknown]
  - Upper respiratory tract infection [Unknown]
  - Vomiting [Unknown]
  - Diarrhoea [Unknown]
  - Herpes zoster [Unknown]
  - Therapy non-responder [Unknown]
  - Adverse event [Unknown]
  - Dermatitis atopic [Unknown]
  - Eczema asteatotic [Unknown]
